FAERS Safety Report 8013569 (Version 4)
Quarter: 2014Q1

REPORT INFORMATION
  Report Type: Report from Study
  Country: IL (occurrence: IL)
  Receive Date: 20110627
  Receipt Date: 20140218
  Transmission Date: 20141002
  Serious: Yes (Hospitalization)
  Sender: FDA-Public Use
  Company Number: IL-ROCHE-744758

PATIENT
  Age: 57 Year
  Sex: Female
  Weight: 78 kg

DRUGS (18)
  1. METHOXY POLYETHYLENE GLYCOL-EPOETIN BETA [Suspect]
     Indication: NEPHROGENIC ANAEMIA
     Route: 042
  2. METHOXY POLYETHYLENE GLYCOL-EPOETIN BETA [Suspect]
     Route: 042
  3. METHOXY POLYETHYLENE GLYCOL-EPOETIN BETA [Suspect]
     Route: 042
  4. ENALAPRIL [Concomitant]
     Dosage: REPORTED AS: CONVERTIN, TDD: 20 MG
     Route: 065
  5. VERAPAMIL [Concomitant]
     Dosage: REPORTED AS: IKAPRESS, TDD: 240
     Route: 065
  6. NORMOPRESAN [Concomitant]
     Dosage: TDD: 0.075
     Route: 065
  7. SIMVASTATIN [Concomitant]
     Route: 065
  8. ELTROXIN [Concomitant]
     Route: 065
  9. FUROSEMIDE [Concomitant]
     Dosage: REPORTED AS: FUSID, TDD: 40
     Route: 065
  10. TRIBEMIN [Concomitant]
     Route: 065
  11. FOLIC ACID [Concomitant]
     Route: 065
  12. VITAMIN C [Concomitant]
     Route: 065
  13. CALTRATE [Concomitant]
     Route: 065
  14. ALPHA D3 [Concomitant]
     Dosage: REPORTED AS: ALFA D3
     Route: 065
  15. TAMOXIFEN [Concomitant]
     Dosage: REPORTED AS: TAMOXIPEN
     Route: 065
     Dates: start: 20090315, end: 20100912
  16. ADALIMUMAB [Concomitant]
     Route: 065
  17. THYROXINE SODIUM [Concomitant]
     Route: 065
  18. DOXAZOSIN [Concomitant]
     Route: 065

REACTIONS (2)
  - Breast cancer [Recovered/Resolved]
  - Diplopia [Recovered/Resolved with Sequelae]
